FAERS Safety Report 5036910-4 (Version None)
Quarter: 2006Q2

REPORT INFORMATION
  Report Type: 
  Country: None (occurrence: None)
  Receive Date: 20060623
  Receipt Date: 20060606
  Transmission Date: 20061013
  Serious: Yes (Death, Hospitalization)
  Sender: FDA-Public Use
  Company Number: CA200606001079

PATIENT
  Age: 57 Year
  Sex: Male

DRUGS (3)
  1. OLANZAPINE [Suspect]
     Dosage: 30 MG, INTRAMUSCULAR
     Route: 030
     Dates: start: 20060501
  2. ZYPREXA [Suspect]
     Dosage: 10 MG, 1/D, ORAL
     Route: 048
  3. ATIVAN [Concomitant]

REACTIONS (1)
  - AGITATION [None]
